FAERS Safety Report 23472236 (Version 2)
Quarter: 2024Q3

REPORT INFORMATION
  Report Type: Spontaneous
  Country: AR (occurrence: AR)
  Receive Date: 20240202
  Receipt Date: 20240816
  Transmission Date: 20241017
  Serious: Yes (Hospitalization, Other)
  Sender: KYOWA
  Company Number: AR-KYOWAKIRIN-2024KK001716

PATIENT

DRUGS (2)
  1. CRYSVITA [Suspect]
     Active Substance: BUROSUMAB-TWZA
     Indication: Hypophosphataemic osteomalacia
     Dosage: 40 MG, 1X/MONTH (STRENGTH: 30 MG/ML AND 10 MG/ML)
     Route: 058
     Dates: start: 20200414
  2. CRYSVITA [Suspect]
     Active Substance: BUROSUMAB-TWZA
     Indication: Hypophosphataemic osteomalacia
     Dosage: 40 MG, 1X/MONTH (STRENGTH: 30 MG/ML AND 10 MG/ML)
     Route: 058
     Dates: start: 20200414

REACTIONS (2)
  - Osteomyelitis [Not Recovered/Not Resolved]
  - Off label use [Unknown]

NARRATIVE: CASE EVENT DATE: 20200414
